FAERS Safety Report 5456479-X (Version None)
Quarter: 2007Q3

REPORT INFORMATION
  Report Type: 
  Country: None (occurrence: None)
  Receive Date: 20070918
  Receipt Date: 20070914
  Transmission Date: 20080115
  Serious: Yes (Hospitalization)
  Sender: FDA-Public Use
  Company Number: GB-BRISTOL-MYERS SQUIBB COMPANY-13899133

PATIENT
  Age: 66 Year
  Sex: Male
  Weight: 102 kg

DRUGS (8)
  1. VEPESID [Suspect]
     Indication: SMALL CELL LUNG CANCER STAGE UNSPECIFIED
     Dosage: CYCLE2:ON 22AUG 2007 120MG/M2(TOTAL DOSE 240MG)
     Route: 042
     Dates: start: 20070801
  2. VEPESID [Suspect]
     Indication: SMALL CELL LUNG CANCER STAGE UNSPECIFIED
     Dosage: CYCLE 1:02AUG07,03AUG07 CYCLE 2:23AUG07,24AUG-7
     Route: 048
     Dates: start: 20070802
  3. PARAPLATIN [Suspect]
     Indication: SMALL CELL LUNG CANCER STAGE UNSPECIFIED
     Dosage: AUC=5 ON DAY 1.
     Route: 042
     Dates: start: 20070801
  4. METOCLOPRAMIDE [Concomitant]
     Indication: VOMITING
     Dosage: ALSO ON 23-AUG-2007 TO 25-AUG-2007.
     Route: 048
     Dates: start: 20070802, end: 20070804
  5. DEXAMETHASONE 0.5MG TAB [Concomitant]
     Indication: VOMITING
     Dosage: ON DAY 1 OF THE CYCLE
     Route: 042
     Dates: start: 20070801, end: 20070804
  6. DEXAMETHASONE 0.5MG TAB [Concomitant]
     Dosage: ON DAYS 2, 3 AND 4 OF THE CYCLE
     Route: 048
     Dates: start: 20070822, end: 20070825
  7. ONDANSETRON [Concomitant]
     Indication: VOMITING
     Route: 042
     Dates: start: 20070801
  8. ONDANSETRON [Concomitant]
     Route: 048
     Dates: start: 20070822

REACTIONS (3)
  - DYSPHAGIA [None]
  - SWELLING FACE [None]
  - SWOLLEN TONGUE [None]
